FAERS Safety Report 8396711-6 (Version None)
Quarter: 2012Q2

REPORT INFORMATION
  Report Type: 
  Country: None (occurrence: None)
  Receive Date: 20120530
  Receipt Date: 20120521
  Transmission Date: 20120825
  Serious: Yes (Hospitalization, Other)
  Sender: FDA-Public Use
  Company Number: US-CELGENEUS-163-21880-12022676

PATIENT
  Sex: Male

DRUGS (9)
  1. REVLIMID [Suspect]
     Dosage: 10 MILLIGRAM
     Route: 048
     Dates: start: 20120301, end: 20120320
  2. WHOLE BLOOD [Concomitant]
     Route: 065
  3. CALCIUM [Concomitant]
     Route: 065
  4. REVLIMID [Suspect]
     Indication: MULTIPLE MYELOMA
     Dosage: 15 MILLIGRAM
     Route: 048
     Dates: start: 20100628, end: 20101208
  5. METOPROLOL TARTRATE [Concomitant]
     Indication: CORONARY ARTERY DISEASE
     Dosage: 25 MILLIGRAM
     Route: 065
  6. PRILOSEC [Concomitant]
     Route: 065
  7. COUMADIN [Concomitant]
     Dosage: 3.5 MILLIGRAM
     Route: 048
     Dates: start: 20110101
  8. COUMADIN [Concomitant]
     Indication: PULMONARY EMBOLISM
  9. ASPIRIN [Concomitant]
     Indication: CORONARY ARTERY DISEASE
     Route: 065

REACTIONS (5)
  - CARDIAC FAILURE CONGESTIVE [None]
  - ASTHENIA [None]
  - PNEUMONIA [None]
  - ANAEMIA [None]
  - PULMONARY EMBOLISM [None]
